FAERS Safety Report 9260376 (Version 3)
Quarter: 2013Q4

REPORT INFORMATION
  Report Type: Spontaneous
  Country: JP (occurrence: JP)
  Receive Date: 20130429
  Receipt Date: 20131122
  Transmission Date: 20140711
  Serious: Yes (Other)
  Sender: FDA-Public Use
  Company Number: PHHY2013JP041938

PATIENT
  Age: 68 Year
  Sex: Female
  Weight: 58 kg

DRUGS (12)
  1. ZOMETA [Suspect]
     Indication: METASTASES TO BONE
     Dosage: 4 MG,
     Route: 041
     Dates: start: 20110810
  2. ZOMETA [Suspect]
     Dosage: 4 MG,
     Route: 041
     Dates: start: 20130315
  3. LOXONIN [Concomitant]
     Indication: CANCER PAIN
     Dosage: 180 MG, UNK
     Route: 048
     Dates: start: 20110829
  4. LYRICA [Concomitant]
     Indication: NEUROPATHY PERIPHERAL
     Dosage: 150 MG, UNK
     Route: 048
     Dates: start: 20120201
  5. REBAMIPIDE [Concomitant]
     Dosage: 300 MG, UNK
     Route: 048
     Dates: start: 20110829
  6. AMLODIN [Concomitant]
     Indication: HYPERTENSION
     Dosage: 5 MG, UNK
     Route: 048
     Dates: start: 20130201
  7. GASTER D [Concomitant]
     Indication: GASTRIC MUCOSAL LESION
     Dosage: 40 MG, UNK
     Route: 048
     Dates: start: 20110829
  8. CARBOPLATIN [Concomitant]
     Indication: LUNG ADENOCARCINOMA
     Dosage: 250 MG, UNK
     Route: 042
     Dates: start: 20121011, end: 20130329
  9. CARBOPLATIN [Concomitant]
     Dosage: 250 MG, UNK
     Route: 042
     Dates: end: 20130510
  10. GEMCITABINE [Concomitant]
     Indication: LUNG ADENOCARCINOMA
     Dosage: 1600 MG, UNK
     Route: 042
     Dates: start: 20121011, end: 20130329
  11. AVASTIN [Concomitant]
     Indication: LUNG ADENOCARCINOMA
     Dosage: 900 MG, UNK
     Route: 042
     Dates: start: 20111027
  12. AVASTIN [Concomitant]
     Dosage: 900 MG, UNK
     Route: 042
     Dates: start: 20121011, end: 20130329

REACTIONS (4)
  - Osteonecrosis of jaw [Recovering/Resolving]
  - Dental caries [Unknown]
  - Pain in jaw [Unknown]
  - Exposed bone in jaw [Unknown]
